FAERS Safety Report 4332028-4 (Version None)
Quarter: 2004Q2

REPORT INFORMATION
  Report Type: 
  Country: None (occurrence: None)
  Receive Date: 20040405
  Receipt Date: 20040326
  Transmission Date: 20050107
  Serious: Yes (Hospitalization)
  Sender: FDA-Public Use
  Company Number: PHRM2004FR01361

PATIENT
  Age: 63 Year
  Sex: Female
  Weight: 98 kg

DRUGS (5)
  1. AREDIA [Suspect]
     Indication: HYPERCALCAEMIA OF MALIGNANCY
     Dosage: 90 MG, ONCE/SINGLE
     Route: 042
     Dates: start: 20040219, end: 20040219
  2. OFLOCET [Suspect]
     Indication: URINARY TRACT INFECTION
     Dosage: 200 MG, QD
     Route: 048
     Dates: start: 20040222, end: 20040225
  3. STROMECTOL [Suspect]
     Dosage: 3 MG, 6QD
     Route: 048
     Dates: start: 20040220
  4. TRIFLUCAN [Concomitant]
     Indication: ORAL CANDIDIASIS
     Dosage: UNK, UNK
     Dates: end: 20040219
  5. PREDNISONE [Concomitant]
     Dosage: 50 MG DAILY
     Dates: start: 20040220

REACTIONS (4)
  - ALANINE AMINOTRANSFERASE INCREASED [None]
  - BLOOD ALKALINE PHOSPHATASE INCREASED [None]
  - HEPATITIS [None]
  - URINARY TRACT INFECTION [None]
